FAERS Safety Report 17100153 (Version 1)
Quarter: 2019Q4

REPORT INFORMATION
  Report Type: Spontaneous
  Country: FR (occurrence: FR)
  Receive Date: 20191202
  Receipt Date: 20191202
  Transmission Date: 20200122
  Serious: Yes (Hospitalization)
  Sender: FDA-Public Use
  Company Number: FR-MYLANLABS-2019M1115925

PATIENT
  Age: 64 Year
  Sex: Female
  Weight: 57 kg

DRUGS (8)
  1. VOLTARENE                          /00372303/ [Concomitant]
     Active Substance: DICLOFENAC DIETHYLAMINE
     Dosage: UNK
     Route: 003
     Dates: end: 20190523
  2. FOSAVANCE [Concomitant]
     Active Substance: ALENDRONATE SODIUM\CHOLECALCIFEROL
     Dosage: 1 DOSAGE FORM, QW
     Route: 048
     Dates: end: 20190523
  3. TOVIAZ [Concomitant]
     Active Substance: FESOTERODINE FUMARATE
     Dosage: 2 DOSAGE FORM, QD
     Route: 048
     Dates: end: 20190523
  4. GENTAMICINE                        /00047101/ [Suspect]
     Active Substance: GENTAMICIN
     Indication: BACTERIAL INFECTION
     Dosage: 300 MILLIGRAM
     Route: 042
     Dates: start: 20190524, end: 20190524
  5. PARACETAMOL [Concomitant]
     Active Substance: ACETAMINOPHEN
     Dosage: 3 GRAM, QD
     Route: 048
  6. VANCOMYCIN [Suspect]
     Active Substance: VANCOMYCIN
     Indication: BACTERIAL INFECTION
     Dosage: 2 GRAM, QD
     Route: 042
     Dates: start: 20190524, end: 20190525
  7. TAZOCILLINE [Suspect]
     Active Substance: PIPERACILLIN SODIUM\TAZOBACTAM SODIUM
     Indication: BACTERIAL INFECTION
     Dosage: ,3 DOSAGE FORM, QD,4 G/500 MG
     Route: 042
     Dates: start: 20190524, end: 20190529
  8. TANAKAN [Concomitant]
     Active Substance: GINKGO
     Dosage: 2 DOSAGE FORM, QD
     Route: 048
     Dates: end: 20190523

REACTIONS (2)
  - Acute kidney injury [Recovered/Resolved]
  - Renal tubular necrosis [Recovered/Resolved]

NARRATIVE: CASE EVENT DATE: 20190524
